FAERS Safety Report 18947281 (Version 1)
Quarter: 2021Q1

REPORT INFORMATION
  Report Type: Report from Study
  Country: ZA (occurrence: ZA)
  Receive Date: 20210226
  Receipt Date: 20210226
  Transmission Date: 20210420
  Serious: Yes (Death)
  Sender: FDA-Public Use
  Company Number: ZA-ASTRAZENECA-2021A084565

PATIENT
  Age: 17098 Day
  Sex: Female

DRUGS (2)
  1. TOPRAZ [PANTOPRAZOLE] [Suspect]
     Active Substance: PANTOPRAZOLE
     Route: 065
  2. SYMBICORD [Suspect]
     Active Substance: BUDESONIDE\FORMOTEROL
     Dosage: 120 DOSE 160 MCG UNKNOWN160.0UG/INHAL UNKNOWN
     Route: 055

REACTIONS (1)
  - Death [Fatal]

NARRATIVE: CASE EVENT DATE: 20210223
